FAERS Safety Report 8831843 (Version 1)
Quarter: 2012Q4

REPORT INFORMATION
  Report Type: 
  Country: JP (occurrence: JP)
  Receive Date: 20121009
  Receipt Date: 20121009
  Transmission Date: 20130627
  Serious: Yes (Death, Other)
  Sender: FDA-Public Use
  Company Number: JP-PFIZER INC-2012244472

PATIENT
  Age: 42 Year
  Sex: Male

DRUGS (4)
  1. METHYLPREDNISOLONE [Suspect]
     Dosage: 500 mg, for 3 days
     Dates: start: 20090319, end: 20090321
  2. METHYLPREDNISOLONE [Suspect]
     Dosage: UNK
     Dates: start: 200906
  3. METHYLPREDNISOLONE [Suspect]
     Dosage: UNK
     Dates: start: 201003
  4. PREDNISOLONE [Concomitant]

REACTIONS (2)
  - Brugada syndrome [Fatal]
  - Tachycardia paroxysmal [Unknown]
